FAERS Safety Report 7196896-3 (Version None)
Quarter: 2010Q4

REPORT INFORMATION
  Report Type: 
  Country: None (occurrence: None)
  Receive Date: 20101223
  Receipt Date: 20101213
  Transmission Date: 20110411
  Serious: Yes (Hospitalization, Other)
  Sender: FDA-Public Use
  Company Number: JP-PFIZER INC-2010166425

PATIENT
  Age: 57 Year
  Sex: Female
  Weight: 43.2 kg

DRUGS (8)
  1. LYRICA [Suspect]
     Indication: DIABETIC NEUROPATHY
     Dosage: 75 MG, 2X/DAY
     Route: 048
     Dates: start: 20101130, end: 20101201
  2. GLYBURIDE [Concomitant]
     Indication: DIABETES MELLITUS
     Dosage: 2.5 MG, 1X/DAY
     Route: 048
     Dates: start: 20060823, end: 20101026
  3. GLYBURIDE [Concomitant]
     Dosage: 1.25 MG, 1X/DAY
     Route: 048
     Dates: start: 20101026, end: 20101202
  4. VOGLIBOSE [Concomitant]
     Indication: DIABETES MELLITUS
     Dosage: 0.3 MG, 3X/DAY
     Route: 048
     Dates: start: 20070627
  5. LANDSEN [Concomitant]
     Indication: DIABETIC NEUROPATHY
     Dosage: 0.5 MG, 1X/DAY
     Route: 048
     Dates: start: 20061018, end: 20101129
  6. TRYPTANOL [Concomitant]
     Indication: DIABETIC NEUROPATHY
     Dosage: 10 MG, 1X/DAY
     Route: 048
     Dates: start: 20061020, end: 20101129
  7. MECOBALAMIN [Concomitant]
     Indication: DIABETIC NEUROPATHY
     Dosage: 500 UG, 3X/DAY
     Route: 048
     Dates: start: 20071214, end: 20101129
  8. MEXITIL [Concomitant]
     Indication: DIABETIC NEUROPATHY
     Dosage: 50 MG, 2X/DAY
     Route: 048
     Dates: start: 20070725, end: 20101129

REACTIONS (3)
  - HAEMATEMESIS [None]
  - HEADACHE [None]
  - REFLUX OESOPHAGITIS [None]
